FAERS Safety Report 20669255 (Version 2)
Quarter: 2022Q2

REPORT INFORMATION
  Report Type: Report from Study
  Country: MX (occurrence: MX)
  Receive Date: 20220404
  Receipt Date: 20220412
  Transmission Date: 20220721
  Serious: Yes (Other)
  Sender: FDA-Public Use
  Company Number: MX-NOVARTISPH-NVSC2022MX075771

PATIENT
  Sex: Female
  Weight: 70 kg

DRUGS (3)
  1. EXFORGE [Suspect]
     Active Substance: AMLODIPINE BESYLATE\VALSARTAN
     Indication: Pulmonary arterial pressure abnormal
     Dosage: 0.5 DOSAGE FORM, QD
     Route: 048
     Dates: start: 2012
  2. VITAMIN E [Concomitant]
     Active Substance: .ALPHA.-TOCOPHEROL
     Indication: Hypovitaminosis
     Dosage: 1 DOSAGE FORM, EVERY 24 HOUR
     Route: 048
  3. MAGNESIUM [Concomitant]
     Active Substance: MAGNESIUM
     Indication: Hypovitaminosis
     Dosage: 1 DOSAGE FORM, EVERY 24 HOURS
     Route: 048

REACTIONS (6)
  - Thyroid mass [Recovered/Resolved]
  - Metabolic disorder [Unknown]
  - Blood cholesterol increased [Recovered/Resolved]
  - Blood uric acid increased [Recovered/Resolved]
  - Blood glucose increased [Unknown]
  - Wrong technique in product usage process [Unknown]

NARRATIVE: CASE EVENT DATE: 20120101
